FAERS Safety Report 22281434 (Version 1)
Quarter: 2023Q2

REPORT INFORMATION
  Report Type: Spontaneous
  Country: US (occurrence: None)
  Receive Date: 20230504
  Receipt Date: 20230504
  Transmission Date: 20230721
  Serious: No
  Sender: FDA-Public Use
  Company Number: 2023A101863

PATIENT
  Sex: Male
  Weight: 86.2 kg

DRUGS (1)
  1. BREZTRI [Suspect]
     Active Substance: BUDESONIDE\FORMOTEROL\GLYCOPYRROLATE
     Indication: Chronic obstructive pulmonary disease
     Dosage: 120 INHALATIONS
     Route: 055

REACTIONS (9)
  - Nasopharyngitis [Unknown]
  - Dyspnoea [Unknown]
  - Macular degeneration [Unknown]
  - Device use issue [Unknown]
  - Incorrect dose administered by device [Unknown]
  - Off label use [Unknown]
  - Wrong technique in device usage process [Unknown]
  - Device malfunction [Unknown]
  - Drug dose omission by device [Unknown]
